FAERS Safety Report 4752847-X (Version None)
Quarter: 2005Q3

REPORT INFORMATION
  Report Type: 
  Country: None (occurrence: None)
  Receive Date: 20050714
  Receipt Date: 20040727
  Transmission Date: 20060218
  Serious: Yes (Hospitalization)
  Sender: FDA-Public Use
  Company Number: 200415662US

PATIENT
  Age: 63 Year
  Sex: Female

DRUGS (14)
  1. TAXOTERE [Suspect]
     Indication: LUNG NEOPLASM MALIGNANT
     Dosage: 36 MG/M**2 Q4W IV
     Route: 042
     Dates: start: 20040504
  2. PANTOPRAZOLE SODIUM [Concomitant]
  3. MULTI-VITAMIN [Concomitant]
  4. SYNTHROID [Concomitant]
  5. LEVAQUIN [Concomitant]
  6. EPOGEN [Concomitant]
  7. DOCUSATE [Concomitant]
  8. BISACODYL [Concomitant]
  9. ALBUTEROL [Concomitant]
  10. TYLENOL [Concomitant]
  11. IPRATROPIUM BROMIDE (ATROVENT) [Concomitant]
  12. PROMETHAZINE [Concomitant]
  13. AMBIEN [Concomitant]
  14. MORPHINE [Concomitant]

REACTIONS (1)
  - PLEURAL EFFUSION [None]
